FAERS Safety Report 7142343-7 (Version None)
Quarter: 2010Q4

REPORT INFORMATION
  Report Type: 
  Country: None (occurrence: None)
  Receive Date: 20101207
  Receipt Date: 20101129
  Transmission Date: 20110411
  Serious: Yes (Hospitalization, Other)
  Sender: FDA-Public Use
  Company Number: US-ELI_LILLY_AND_COMPANY-US201003005188

PATIENT
  Sex: Female

DRUGS (9)
  1. FORTEO [Suspect]
     Indication: OSTEOPOROSIS
     Dosage: 20 UG, DAILY (1/D)
     Dates: start: 20091120, end: 20100206
  2. FORTEO [Suspect]
     Dosage: 20 UG, DAILY (1/D)
     Dates: start: 20100327
  3. SYNTHROID [Concomitant]
     Dosage: UNK, DAILY (1/D)
  4. ATENOLOL [Concomitant]
     Dosage: UNK, DAILY (1/D)
  5. ZOLOFT [Concomitant]
     Dosage: UNK, DAILY (1/D)
  6. CALCIUM [Concomitant]
  7. VITAMIN D [Concomitant]
     Dosage: 2000 MG, DAILY (1/D)
  8. CELEBREX [Concomitant]
     Dosage: UNK, DAILY (1/D)
  9. CITRACAL-D [Concomitant]
     Dosage: 600 MG, DAILY (1/D)

REACTIONS (7)
  - DEEP VEIN THROMBOSIS [None]
  - FALL [None]
  - FEMUR FRACTURE [None]
  - MUSCULAR WEAKNESS [None]
  - OEDEMA PERIPHERAL [None]
  - PAIN IN EXTREMITY [None]
  - UPPER LIMB FRACTURE [None]
